FAERS Safety Report 4809729-4 (Version None)
Quarter: 2005Q4

REPORT INFORMATION
  Report Type: 
  Country: None (occurrence: None)
  Receive Date: 20051024
  Receipt Date: 20051013
  Transmission Date: 20060501
  Serious: Yes (Disabling, Other)
  Sender: FDA-Public Use
  Company Number: 200406402

PATIENT
  Age: 75 Year
  Sex: Female
  Weight: 68.0396 kg

DRUGS (3)
  1. ACULAR [Suspect]
     Indication: POSTOPERATIVE CARE
     Dosage: 1 DROP QID EYE
     Dates: start: 20030804
  2. FRED FORTE SUSPENSION [Concomitant]
  3. VIGAMOX [Concomitant]

REACTIONS (9)
  - BLINDNESS [None]
  - CATARACT OPERATION COMPLICATION [None]
  - EYE PAIN [None]
  - FACTITIOUS DISORDER [None]
  - HEADACHE [None]
  - HYPERTENSION [None]
  - IATROGENIC INJURY [None]
  - NERVE INJURY [None]
  - REFUSAL OF TREATMENT BY PATIENT [None]
